FAERS Safety Report 21805890 (Version 2)
Quarter: 2023Q1

REPORT INFORMATION
  Report Type: Spontaneous
  Country: ES (occurrence: ES)
  Receive Date: 20230102
  Receipt Date: 20230113
  Transmission Date: 20230417
  Serious: Yes (Other)
  Sender: FDA-Public Use
  Company Number: ES-002147023-NVSC2022ES300233

PATIENT

DRUGS (7)
  1. RUXOLITINIB [Suspect]
     Active Substance: RUXOLITINIB
     Indication: Polycythaemia vera
     Dosage: 10 MG, Q12H
     Route: 048
     Dates: start: 20220519, end: 20221222
  2. ALLOPURINOL [Concomitant]
     Active Substance: ALLOPURINOL
     Indication: Product used for unknown indication
     Dosage: 1 DOSAGE FORM, Q48H (30 TABLETS)
     Route: 048
  3. ACEDIUR [CAPTOPRIL;HYDROCHLOROTHIAZIDE] [Concomitant]
     Indication: Product used for unknown indication
     Dosage: 1 DOSAGE FORM (BREAKFAST) (30 TABLETS)
     Route: 048
  4. FENOFIBRATE [Concomitant]
     Active Substance: FENOFIBRATE
     Indication: Product used for unknown indication
     Dosage: 1 DOSAGE FORM, Q24H, (30 CAPSULE)
     Route: 048
  5. ATORVASTATIN [Concomitant]
     Active Substance: ATORVASTATIN
     Indication: Product used for unknown indication
     Dosage: 1 DOSAGE FORM (DINNER), (28 COATED TABLETS) (AUROVITAS PHARMA)
     Route: 048
  6. ASPIRIN [Concomitant]
     Active Substance: ASPIRIN
     Indication: Product used for unknown indication
     Dosage: 1 DOSAGE FORM, (LUNCH) (100 TABLETS) (ARISTO)
     Route: 048
  7. OMEPRAZOLE [Concomitant]
     Active Substance: OMEPRAZOLE
     Indication: Product used for unknown indication
     Dosage: 1 DOSAGE FORM, (56 GASTRORESISTENT HARD CAPSULES: 1 CAPSULE BEFORE BREAKFAST) (CINFA)
     Route: 048

REACTIONS (2)
  - Optic neuropathy [Unknown]
  - Exophthalmos [Unknown]

NARRATIVE: CASE EVENT DATE: 20220921
